FAERS Safety Report 8712423 (Version 5)
Quarter: 2013Q4

REPORT INFORMATION
  Report Type: Spontaneous
  Country: JP (occurrence: JP)
  Receive Date: 20120808
  Receipt Date: 20131025
  Transmission Date: 20140711
  Serious: Yes (Hospitalization)
  Sender: FDA-Public Use
  Company Number: JP-AMGEN-JPNSP2012048657

PATIENT
  Age: 64 Year
  Sex: Male

DRUGS (10)
  1. ENBREL [Suspect]
     Indication: RHEUMATOID ARTHRITIS
     Dosage: 25 MG, 2X/WEEK
     Route: 058
     Dates: start: 20100626, end: 20120721
  2. ENBREL [Suspect]
     Dosage: 50 MG, WEEKLY
     Route: 065
     Dates: start: 201006
  3. PROGRAF [Concomitant]
     Indication: RHEUMATOID ARTHRITIS
     Dosage: 1 MG, QD
     Route: 048
     Dates: start: 20110530, end: 20120702
  4. PROGRAF [Concomitant]
     Dosage: 1 MG, QD
     Route: 065
     Dates: start: 201106
  5. RHEUMATREX                         /00113801/ [Concomitant]
     Indication: RHEUMATOID ARTHRITIS
     Dosage: 4 MG, WEEKLY
     Route: 048
     Dates: start: 20100205, end: 20120415
  6. RHEUMATREX                         /00113801/ [Concomitant]
     Dosage: 10 MG, WEEKLY
     Route: 048
     Dates: start: 20100416, end: 20100806
  7. RHEUMATREX                         /00113801/ [Concomitant]
     Dosage: 12 MG, WEEKLY
     Route: 048
     Dates: start: 20100807, end: 20110529
  8. RHEUMATREX                         /00113801/ [Concomitant]
     Dosage: 10 MG, WEEKLY
     Route: 048
     Dates: start: 20110530, end: 20120427
  9. RHEUMATREX                         /00113801/ [Concomitant]
     Dosage: 8 MG, WEEKLY
     Route: 048
     Dates: start: 20120428, end: 20120721
  10. RHEUMATREX                         /00113801/ [Concomitant]
     Dosage: 10 MG, QWK
     Route: 065
     Dates: start: 201002

REACTIONS (2)
  - Nephritis [Recovered/Resolved]
  - Anti-neutrophil cytoplasmic antibody positive vasculitis [Recovered/Resolved]
